FAERS Safety Report 19765668 (Version 1)
Quarter: 2021Q3

REPORT INFORMATION
  Report Type: Spontaneous
  Country: IT (occurrence: IT)
  Receive Date: 20210830
  Receipt Date: 20210830
  Transmission Date: 20211014
  Serious: Yes (Death)
  Sender: FDA-Public Use
  Company Number: IT-MYLANLABS-2021M1056441

PATIENT
  Sex: Female

DRUGS (2)
  1. PACLITAXEL. [Suspect]
     Active Substance: PACLITAXEL
     Indication: BREAST CANCER
     Dosage: UNK UNK, CYCLE (UNK, CYCLIC)
     Route: 065
  2. DOXORUBICIN [Suspect]
     Active Substance: DOXORUBICIN
     Indication: BREAST CANCER
     Dosage: UNK UNK, CYCLE (UNK, CYCLIC (THREE CYCLES, 180 MG PER M^2 OF BODY SURFACE AREA)
     Route: 065

REACTIONS (2)
  - Cardiac failure congestive [Fatal]
  - Ejection fraction decreased [Fatal]
